FAERS Safety Report 7158272-9 (Version None)
Quarter: 2010Q4

REPORT INFORMATION
  Report Type: 
  Country: None (occurrence: None)
  Receive Date: 20101214
  Receipt Date: 20100405
  Transmission Date: 20110411
  Serious: No
  Sender: FDA-Public Use
  Company Number: US-ASTRAZENECA-2010SE14802

PATIENT
  Age: 68 Year
  Sex: Female
  Weight: 81.6 kg

DRUGS (9)
  1. CRESTOR [Suspect]
     Indication: BLOOD CHOLESTEROL INCREASED
     Route: 048
     Dates: start: 20090717
  2. PLAVIX [Concomitant]
     Indication: ANTIPLATELET THERAPY
  3. ISOSORBIDE DINITRATE [Concomitant]
  4. ASPIRIN [Concomitant]
  5. DOXYCYCLINE HYCLATE [Concomitant]
     Indication: LYME DISEASE
  6. PRILOSEC OTC [Concomitant]
  7. PRENATAEL VITAMINS [Concomitant]
  8. COD LIVER OIL [Concomitant]
  9. CALCIUM [Concomitant]

REACTIONS (3)
  - EXOSTOSIS [None]
  - PAIN IN EXTREMITY [None]
  - WEIGHT INCREASED [None]
